FAERS Safety Report 19840175 (Version 3)
Quarter: 2022Q1

REPORT INFORMATION
  Report Type: Spontaneous
  Country: US (occurrence: US)
  Receive Date: 20210915
  Receipt Date: 20220119
  Transmission Date: 20220423
  Serious: No
  Sender: FDA-Public Use
  Company Number: US-SA-2021SA300857

PATIENT
  Age: 81 Year
  Sex: Male

DRUGS (3)
  1. XYZAL [Suspect]
     Active Substance: LEVOCETIRIZINE DIHYDROCHLORIDE
     Indication: Product used for unknown indication
     Dosage: UNK
  2. OFEV [Suspect]
     Active Substance: NINTEDANIB
     Indication: Idiopathic pulmonary fibrosis
     Dosage: 300 MG, QD
     Route: 048
     Dates: start: 20210315
  3. OFEV [Suspect]
     Active Substance: NINTEDANIB
     Dosage: 200 UNK
     Route: 048
     Dates: end: 202111

REACTIONS (7)
  - Weight decreased [Unknown]
  - Feeling abnormal [Unknown]
  - Seasonal allergy [Unknown]
  - Abdominal pain [Unknown]
  - Fatigue [Unknown]
  - Constipation [Unknown]
  - Diarrhoea [Unknown]

NARRATIVE: CASE EVENT DATE: 20210101
